FAERS Safety Report 14707870 (Version 1)
Quarter: 2018Q2

REPORT INFORMATION
  Report Type: Spontaneous
  Country: US (occurrence: US)
  Receive Date: 20180403
  Receipt Date: 20180403
  Transmission Date: 20180711
  Serious: Yes (Hospitalization, Other)
  Sender: FDA-Public Use
  Company Number: US-IROKO PHARMACEUTICALS LLC-US-I09001-18-00042

PATIENT

DRUGS (1)
  1. INDOMETHACIN AMBIGUOUS [Suspect]
     Active Substance: INDOMETHACIN
     Indication: TOCOLYSIS
     Route: 064

REACTIONS (9)
  - Right ventricular hypertension [Recovered/Resolved]
  - Ductus arteriosus premature closure [Not Recovered/Not Resolved]
  - Right ventricular hypertrophy [Recovered/Resolved]
  - Tricuspid valve incompetence [Recovering/Resolving]
  - Right ventricular dysfunction [Recovered/Resolved]
  - Right-to-left cardiac shunt [Unknown]
  - Atrial septal defect [Unknown]
  - Right atrial dilatation [Recovering/Resolving]
  - Foetal exposure during pregnancy [Recovered/Resolved]
